FAERS Safety Report 16169000 (Version 1)
Quarter: 2019Q2

REPORT INFORMATION
  Report Type: Spontaneous
  Country: US (occurrence: US)
  Receive Date: 20190305
  Receipt Date: 20190305
  Transmission Date: 20190711
  Serious: No
  Sender: FDA-Public Use
  Company Number: None

PATIENT
  Age: 80 Year
  Sex: Female
  Weight: 63.5 kg

DRUGS (1)
  1. PROLIA [Suspect]
     Active Substance: DENOSUMAB
     Indication: BONE DENSITY DECREASED
     Route: 058
     Dates: start: 20181003

REACTIONS (4)
  - Urinary tract infection [None]
  - Rash pustular [None]
  - Incision site erythema [None]
  - Incision site pruritus [None]

NARRATIVE: CASE EVENT DATE: 20181008
